FAERS Safety Report 8935456 (Version 1)
Quarter: 2012Q4

REPORT INFORMATION
  Report Type: Spontaneous
  Country: IT (occurrence: None)
  Receive Date: 20121121
  Receipt Date: 20121121
  Transmission Date: 20130627
  Serious: Yes (Other)
  Sender: FDA-Public Use
  Company Number: AUR-APL-2012-04911

PATIENT
  Age: 74 Year
  Sex: Male

DRUGS (11)
  1. LEVOFLOXACIN (LEVOFLOXACIN) [Suspect]
     Indication: SKIN  ABRASION
     Dosage: (500 mg, 1 D)
     Route: 048
     Dates: start: 20121103, end: 20121106
  2. TRIATEC (RAMIPRIL) [Concomitant]
  3. DILATREND (CARVEDILOL) [Concomitant]
  4. ADENURIC (FEBUXOSTAT) [Concomitant]
  5. NITRO-DUR (GLYCERYL TRINITRATE) [Concomitant]
  6. PROVISACOR (ROSUVASTATIN) [Concomitant]
  7. DELTACORTENE (PREDNISONE) [Concomitant]
  8. TAPAZOLE (THIAMAZOLE) [Concomitant]
  9. CARDIOASPIRIN (ACETYLSALICYLIC ACID) [Concomitant]
  10. LASIX (FUROSEMIDE) [Concomitant]
  11. RANITIDINE (RANITIDINE) [Concomitant]

REACTIONS (3)
  - Muscle tightness [None]
  - Respiratory fatigue [None]
  - Respiratory distress [None]
